FAERS Safety Report 8578731-1 (Version None)
Quarter: 2012Q3

REPORT INFORMATION
  Report Type: 
  Country: None (occurrence: None)
  Receive Date: 20120808
  Receipt Date: 20120730
  Transmission Date: 20120928
  Serious: Yes (Other)
  Sender: FDA-Public Use
  Company Number: JP-VERTEX PHARMACEUTICALS INC.-AE-2012-011608

PATIENT
  Age: 64 Year
  Sex: Female

DRUGS (10)
  1. TELAVIC (TELAPREVIR) [Suspect]
     Route: 048
     Dates: start: 20120620
  2. PEGINTERFERON ALFA-2B [Concomitant]
     Indication: HEPATITIS C
     Route: 048
     Dates: start: 20120523, end: 20120606
  3. RIBAVIRIN [Concomitant]
     Route: 048
     Dates: start: 20120607, end: 20120613
  4. RIBAVIRIN [Concomitant]
     Route: 048
     Dates: start: 20120620
  5. ADONA [Concomitant]
     Route: 048
  6. TELAVIC (TELAPREVIR) [Suspect]
     Indication: HEPATITIS C
     Route: 048
     Dates: start: 20120523, end: 20120613
  7. PEGINTERFERON ALFA-2B [Concomitant]
     Route: 048
     Dates: start: 20120627
  8. PEGINTERFERON ALFA-2B [Concomitant]
     Route: 048
     Dates: start: 20120620
  9. URSO 250 [Concomitant]
     Route: 048
  10. RIBAVIRIN [Concomitant]
     Indication: HEPATITIS C
     Route: 048
     Dates: start: 20120523, end: 20120606

REACTIONS (1)
  - NEUTROPHIL COUNT DECREASED [None]
